FAERS Safety Report 10497576 (Version 5)
Quarter: 2014Q4

REPORT INFORMATION
  Report Type: Report from Study
  Country: US (occurrence: US)
  Receive Date: 20141006
  Receipt Date: 20141215
  Transmission Date: 20150528
  Serious: Yes (Life-Threatening, Hospitalization)
  Sender: FDA-Public Use
  Company Number: US-JNJFOC-20140915012

PATIENT
  Age: 30 Year
  Sex: Female
  Weight: 92 kg

DRUGS (7)
  1. APAP [Suspect]
     Active Substance: ACETAMINOPHEN
     Indication: PRODUCT USED FOR UNKNOWN INDICATION
     Route: 065
  2. APAP [Suspect]
     Active Substance: ACETAMINOPHEN
     Route: 065
  3. PHENTERMINE [Suspect]
     Active Substance: PHENTERMINE
     Indication: PRODUCT USED FOR UNKNOWN INDICATION
     Route: 065
  4. VENLAFAXINE [Suspect]
     Active Substance: VENLAFAXINE HYDROCHLORIDE
     Indication: PRODUCT USED FOR UNKNOWN INDICATION
     Route: 065
  5. QUETIAPINE [Suspect]
     Active Substance: QUETIAPINE
     Indication: PRODUCT USED FOR UNKNOWN INDICATION
     Route: 065
  6. TOPIRAMATE. [Suspect]
     Active Substance: TOPIRAMATE
     Indication: PAIN
     Route: 065
  7. HYDROXYZINE [Suspect]
     Active Substance: HYDROXYZINE\HYDROXYZINE HYDROCHLORIDE
     Indication: PRODUCT USED FOR UNKNOWN INDICATION
     Route: 065

REACTIONS (13)
  - Intentional overdose [Recovered/Resolved]
  - Toxicity to various agents [Recovered/Resolved]
  - Metabolic acidosis [Recovered/Resolved]
  - Pneumonia aspiration [Recovered/Resolved]
  - Acute hepatic failure [Recovered/Resolved]
  - Intracranial pressure increased [Recovered/Resolved]
  - Sedation [Recovered/Resolved]
  - Suicide attempt [Recovered/Resolved]
  - Encephalopathy [Recovered/Resolved]
  - Vasodilatation [Recovered/Resolved]
  - Shock [Recovered/Resolved]
  - Respiratory failure [Recovered/Resolved]
  - Dehydration [Recovered/Resolved]
